FAERS Safety Report 8490689 (Version 2)
Quarter: 2013Q3

REPORT INFORMATION
  Report Type: Report from Study
  Country: MX (occurrence: MX)
  Receive Date: 20120403
  Receipt Date: 20130715
  Transmission Date: 20140515
  Serious: Yes (Other)
  Sender: FDA-Public Use
  Company Number: PHHY2012MX027597

PATIENT
  Age: 63 Year
  Sex: Female

DRUGS (5)
  1. ACLASTA [Suspect]
     Indication: OSTEOPOROSIS
     Dosage: 5 MG, YEARLY
     Route: 042
     Dates: start: 20120321
  2. COUMADINE [Concomitant]
     Indication: CARDIAC DISORDER
     Dosage: 5 MG, DAILY
     Dates: start: 2002
  3. COUMADINE [Concomitant]
     Indication: ANTICOAGULANT THERAPY
  4. PROPAFENONE [Concomitant]
     Indication: BLOOD PRESSURE
     Dosage: 100 MG, DAILY
     Dates: start: 201111
  5. TENORMIN [Concomitant]
     Indication: HYPERTENSION
     Dosage: 0.5 DF, DAILY

REACTIONS (12)
  - Tachycardia [Not Recovered/Not Resolved]
  - Feeling abnormal [Not Recovered/Not Resolved]
  - Hyperhidrosis [Not Recovered/Not Resolved]
  - Insomnia [Not Recovered/Not Resolved]
  - Gastritis [Not Recovered/Not Resolved]
  - Abdominal pain upper [Not Recovered/Not Resolved]
  - Palpitations [Not Recovered/Not Resolved]
  - Dyspnoea [Not Recovered/Not Resolved]
  - Chills [Not Recovered/Not Resolved]
  - Nausea [Not Recovered/Not Resolved]
  - Fatigue [Not Recovered/Not Resolved]
  - Pain [Not Recovered/Not Resolved]
